FAERS Safety Report 4338371-7 (Version None)
Quarter: 2004Q2

REPORT INFORMATION
  Report Type: 
  Country: None (occurrence: None)
  Receive Date: 20040407
  Receipt Date: 20040329
  Transmission Date: 20050107
  Serious: Yes (Life-Threatening, Hospitalization)
  Sender: FDA-Public Use
  Company Number: MEDI-0001494

PATIENT
  Age: 3 Month
  Sex: Male

DRUGS (1)
  1. SYNAGIS [Suspect]
     Indication: ANTIVIRAL PROPHYLAXIS
     Dosage: 50 MG, 1 IN 30 D, SUBCUTANEOUS
     Route: 058
     Dates: start: 20040120, end: 20040120

REACTIONS (4)
  - CYANOSIS [None]
  - HAEMOPHILUS INFECTION [None]
  - PNEUMONIA [None]
  - RESPIRATORY ARREST [None]
